FAERS Safety Report 23206198 (Version 4)
Quarter: 2023Q4

REPORT INFORMATION
  Report Type: Spontaneous
  Country: US (occurrence: US)
  Receive Date: 20231120
  Receipt Date: 20231214
  Transmission Date: 20240110
  Serious: Yes (Hospitalization, Other)
  Sender: FDA-Public Use
  Company Number: US-PFIZER INC-202300377341

PATIENT
  Age: 87 Year
  Sex: Female
  Weight: 57.596 kg

DRUGS (1)
  1. PREMARIN [Suspect]
     Active Substance: ESTROGENS, CONJUGATED
     Indication: Vaginal haemorrhage
     Dosage: 0.5 GRAMS EVERY NIGHT AT BEDTIME FOR 14DAYS, THEN THREE TIMES WEEKLY
     Dates: start: 20231101, end: 20231106

REACTIONS (7)
  - Vision blurred [Recovering/Resolving]
  - Dizziness [Recovering/Resolving]
  - Head discomfort [Recovering/Resolving]
  - Foreign body in eye [Recovering/Resolving]
  - Urinary tract infection [Recovering/Resolving]
  - Mental impairment [Unknown]
  - Off label use [Unknown]

NARRATIVE: CASE EVENT DATE: 20231107
